FAERS Safety Report 4361326-3 (Version None)
Quarter: 2004Q2

REPORT INFORMATION
  Report Type: 
  Country: None (occurrence: None)
  Receive Date: 20040520
  Receipt Date: 20040512
  Transmission Date: 20050107
  Serious: Yes (Hospitalization)
  Sender: FDA-Public Use
  Company Number: LB-MERCK-0405USA00887

PATIENT
  Age: 100 Year
  Sex: Male

DRUGS (2)
  1. ZOCOR [Suspect]
     Indication: HYPERCHOLESTEROLAEMIA
     Route: 048
     Dates: start: 20031202
  2. ISOPTIN TAB [Concomitant]
     Route: 065
     Dates: start: 20031202

REACTIONS (1)
  - HEMIPARESIS [None]
